FAERS Safety Report 9465305 (Version 1)
Quarter: 2013Q3

REPORT INFORMATION
  Report Type: Spontaneous
  Country: GB (occurrence: GB)
  Receive Date: 20130820
  Receipt Date: 20130820
  Transmission Date: 20140515
  Serious: Yes (Other)
  Sender: FDA-Public Use
  Company Number: GB-JNJFOC-20130803838

PATIENT
  Sex: Female

DRUGS (2)
  1. REGAINE REGULAR STRENGTH WOMEN 25 [Suspect]
     Route: 061
  2. REGAINE REGULAR STRENGTH WOMEN 25 [Suspect]
     Indication: ALOPECIA
     Route: 061

REACTIONS (6)
  - Dyspnoea [Unknown]
  - Chest pain [Unknown]
  - Dark circles under eyes [Unknown]
  - Headache [Unknown]
  - Cough [Unknown]
  - Hair growth abnormal [Unknown]
